FAERS Safety Report 4709645-2 (Version None)
Quarter: 2005Q3

REPORT INFORMATION
  Report Type: 
  Country: None (occurrence: None)
  Receive Date: 20050707
  Receipt Date: 20050629
  Transmission Date: 20060218
  Serious: Yes (Hospitalization, Other)
  Sender: FDA-Public Use
  Company Number: US_0502112134

PATIENT
  Age: 33 Year
  Sex: Female
  Weight: 64 kg

DRUGS (6)
  1. ZYPREXA [Suspect]
     Indication: NERVOUSNESS
     Dosage: 5 MG AT BEDTIME
     Dates: start: 19990112
  2. FLUOXETINE [Concomitant]
  3. ATIVAN [Concomitant]
  4. XANAX [Concomitant]
  5. EFFEXOR [Concomitant]
  6. PHENERGAN (PRMETHAZINE HYDROCHLORIDE) [Concomitant]

REACTIONS (7)
  - BLADDER PROLAPSE [None]
  - COR PULMONALE [None]
  - DIABETES MELLITUS NON-INSULIN-DEPENDENT [None]
  - DRUG INEFFECTIVE [None]
  - HYPERGLYCAEMIA [None]
  - ROAD TRAFFIC ACCIDENT [None]
  - SPIGELIAN HERNIA [None]
